FAERS Safety Report 5465484-9 (Version None)
Quarter: 2007Q3

REPORT INFORMATION
  Report Type: 
  Country: None (occurrence: None)
  Receive Date: 20070924
  Receipt Date: 20070912
  Transmission Date: 20080115
  Serious: Yes (Life-Threatening)
  Sender: FDA-Public Use
  Company Number: JP-PURDUE-MAG_2007_0000582

PATIENT
  Age: 61 Year
  Sex: Male

DRUGS (11)
  1. OXYCONTIN [Suspect]
     Indication: DRUG USE FOR UNKNOWN INDICATION
  2. IMUNACE [Suspect]
     Indication: RENAL CELL CARCINOMA STAGE IV
     Dosage: 700 KIU, DAILY
     Route: 041
     Dates: start: 20070726, end: 20070809
  3. TAGAMET [Concomitant]
     Indication: RENAL CELL CARCINOMA STAGE IV
     Dosage: 400 MG, DAILY
     Route: 048
     Dates: start: 20070323, end: 20070814
  4. LOXONIN [Concomitant]
     Indication: CANCER PAIN
     Dosage: 180 MG, DAILY
     Route: 048
     Dates: start: 20070717, end: 20070814
  5. MUCOSTA [Concomitant]
     Indication: PROPHYLAXIS AGAINST GASTROINTESTINAL ULCER
     Dosage: 300 MG, DAILY
     Route: 048
     Dates: start: 20070717, end: 20070814
  6. PANTOSIN [Concomitant]
     Indication: PROPHYLAXIS
     Dosage: 2.01 GRAM, DAILY
     Route: 048
     Dates: start: 20070721, end: 20070814
  7. CODEINE PHOSPHATE [Concomitant]
     Indication: CANCER PAIN
     Dosage: 80 MG, DAILY
     Route: 048
     Dates: start: 20070721, end: 20070801
  8. MAGNESIUM OXIDE [Concomitant]
     Indication: PROPHYLAXIS
     Dosage: 2.01 GRAM, DAILY
     Route: 048
     Dates: start: 20070721, end: 20070814
  9. NAPA [Concomitant]
     Indication: PYREXIA
     Route: 048
  10. CEFTAZIDIME [Concomitant]
     Dosage: UNK, UNK
     Dates: start: 20070731, end: 20070802
  11. NOVAMIN [Concomitant]
     Indication: PROPHYLAXIS
     Dosage: 15 MG, DAILY
     Route: 048
     Dates: start: 20070721, end: 20070814

REACTIONS (1)
  - CHOLESTASIS [None]
